FAERS Safety Report 7224416-3 (Version None)
Quarter: 2011Q1

REPORT INFORMATION
  Report Type: 
  Country: None (occurrence: None)
  Receive Date: 20110113
  Receipt Date: 20110106
  Transmission Date: 20110831
  Serious: Yes (Hospitalization, Other)
  Sender: FDA-Public Use
  Company Number: CA-JNJFOC-20101101433

PATIENT
  Sex: Female
  Weight: 74 kg

DRUGS (9)
  1. LIPITOR [Concomitant]
     Dosage: 1/2 20 MG/DAY
  2. SORIATANE [Concomitant]
  3. NOVO-HYDRAZIDE [Concomitant]
  4. SANDOZ BISOPROLOL [Concomitant]
     Dosage: 1/2 TAB/DAY
  5. NOVO-HYDROXYZIN [Concomitant]
  6. METHOTREXATE [Concomitant]
  7. REMICADE [Suspect]
     Indication: PSORIASIS
     Route: 042
  8. RAMIPRIL-RATIOPHARM [Concomitant]
  9. APO-FOLIC [Concomitant]

REACTIONS (2)
  - OVARIAN CYST [None]
  - NASOPHARYNGITIS [None]
